FAERS Safety Report 18053708 (Version 1)
Quarter: 2020Q3

REPORT INFORMATION
  Report Type: Spontaneous
  Country: US (occurrence: US)
  Receive Date: 20200721
  Receipt Date: 20200721
  Transmission Date: 20201103
  Serious: Yes (Disabling)
  Sender: FDA-Public Use
  Company Number: None

PATIENT
  Age: 34 Year
  Sex: Female
  Weight: 47.25 kg

DRUGS (1)
  1. DULOXETINE HCL DR 30 MG CAP, CYMBALTA [Suspect]
     Active Substance: DULOXETINE HYDROCHLORIDE
     Indication: ANXIETY
     Dosage: ?          QUANTITY:1 CAPSULE(S);?
     Route: 048
     Dates: start: 20200609, end: 20200709

REACTIONS (5)
  - Weight decreased [None]
  - Anorgasmia [None]
  - Aphonia [None]
  - Pharyngeal hypoaesthesia [None]
  - Nausea [None]

NARRATIVE: CASE EVENT DATE: 20200620
